FAERS Safety Report 4479268-1 (Version None)
Quarter: 2004Q4

REPORT INFORMATION
  Report Type: 
  Country: None (occurrence: None)
  Receive Date: 20041015
  Receipt Date: 20041005
  Transmission Date: 20050328
  Serious: Yes (Hospitalization)
  Sender: FDA-Public Use
  Company Number: 2004SE05534

PATIENT
  Age: 60 Year
  Sex: Female

DRUGS (1)
  1. ESOMEPRAZOLE [Suspect]

REACTIONS (1)
  - HEPATITIS CHOLESTATIC [None]
